FAERS Safety Report 8714968 (Version 3)
Quarter: 2012Q4

REPORT INFORMATION
  Report Type: 
  Country: JP (occurrence: JP)
  Receive Date: 20120809
  Receipt Date: 20120918
  Transmission Date: 20130627
  Serious: Yes (Hospitalization)
  Sender: FDA-Public Use
  Company Number: PHHY2012JP058692

PATIENT
  Age: 86 None
  Sex: Female
  Weight: 37 kg

DRUGS (9)
  1. SYMMETREL [Suspect]
     Indication: PARKINSON^S DISEASE
     Dosage: 300 mg, UNK
     Route: 048
     Dates: end: 20120704
  2. MENESIT [Suspect]
     Indication: PARKINSON^S DISEASE
     Dosage: 300 mg, UNK
     Route: 048
  3. SIFROL [Suspect]
     Indication: PARKINSON^S DISEASE
     Dosage: 3 mg, UNK
     Route: 048
     Dates: end: 20120704
  4. SELEGILINE HYDROCHLORIDE [Suspect]
     Indication: PARKINSON^S DISEASE
     Dosage: 5 mg, UNK
     Route: 048
     Dates: end: 20120706
  5. SELBEX [Suspect]
     Indication: GASTRIC ULCER
     Dosage: 150 mg, UNK
     Route: 048
     Dates: end: 20120724
  6. ITOROL [Suspect]
     Indication: ANGINA PECTORIS
     Dosage: 40 mg, UNK
     Route: 048
  7. TAKEPRON [Suspect]
     Indication: GASTRIC ULCER
     Dosage: 15 mg, UNK
     Route: 048
  8. ZONISAMIDE [Suspect]
     Indication: PARKINSON^S DISEASE
     Dosage: 25 mg, UNK
     Route: 048
     Dates: end: 20120702
  9. COMTAN [Concomitant]
     Indication: PARKINSON^S DISEASE
     Dosage: 300 mg, UNK
     Route: 048
     Dates: end: 20120702

REACTIONS (12)
  - Encephalitis brain stem [Recovering/Resolving]
  - Renal impairment [Recovered/Resolved]
  - Hypercreatinaemia [Unknown]
  - Convulsion [Unknown]
  - Myoclonus [Recovered/Resolved]
  - Pneumonia aspiration [Unknown]
  - Altered state of consciousness [Recovering/Resolving]
  - Inflammation [Unknown]
  - Ileus [Unknown]
  - Nutritional condition abnormal [Recovered/Resolved]
  - Pyrexia [Unknown]
  - Parkinson^s disease [Unknown]
